FAERS Safety Report 5280392-4 (Version None)
Quarter: 2007Q1

REPORT INFORMATION
  Report Type: 
  Country: None (occurrence: None)
  Receive Date: 20061229
  Receipt Date: 20060811
  Transmission Date: 20070707
  Serious: Yes (Other)
  Sender: FDA-Public Use
  Company Number: 2006UW16086

PATIENT
  Age: 77 Year
  Sex: Male
  Weight: 82.553 kg

DRUGS (4)
  1. CRESTOR [Suspect]
     Indication: HIGH DENSITY LIPOPROTEIN DECREASED
     Dates: start: 20060804, end: 20060807
  2. ATENOLOL [Concomitant]
  3. ASPIRIN [Concomitant]
  4. SYNTHROID [Concomitant]

REACTIONS (3)
  - HYPERSOMNIA [None]
  - SOMNOLENCE [None]
  - WHEEZING [None]
